FAERS Safety Report 9345679 (Version 1)
Quarter: 2013Q2

REPORT INFORMATION
  Report Type: Spontaneous
  Country: US (occurrence: US)
  Receive Date: 20130613
  Receipt Date: 20130613
  Transmission Date: 20140414
  Serious: Yes (Disabling)
  Sender: FDA-Public Use
  Company Number: US-009507513-1306USA000980

PATIENT
  Age: 17 Year
  Sex: Female
  Weight: 68.27 kg

DRUGS (1)
  1. NEXPLANON [Suspect]
     Indication: CONTRACEPTION
     Dosage: 1 ROD, EVERY 3 YEARS
     Route: 059
     Dates: start: 20130115

REACTIONS (5)
  - Mobility decreased [Unknown]
  - Implant site pain [Unknown]
  - Implant site haemorrhage [Unknown]
  - Hypoaesthesia [Unknown]
  - Pain in extremity [Unknown]
